FAERS Safety Report 18793101 (Version 1)
Quarter: 2021Q1

REPORT INFORMATION
  Report Type: Spontaneous
  Country: CH (occurrence: CH)
  Receive Date: 20210127
  Receipt Date: 20210127
  Transmission Date: 20210419
  Serious: Yes (Hospitalization, Other)
  Sender: FDA-Public Use
  Company Number: CH-ORION CORPORATION ORION PHARMA-21_00012704

PATIENT
  Age: 72 Year
  Sex: Male

DRUGS (5)
  1. METHOTREXAT FARMOS [Suspect]
     Active Substance: METHOTREXATE
     Indication: PSORIATIC ARTHROPATHY
     Route: 048
     Dates: end: 20200904
  2. CLOPIDOGREL AXAPHARM [Concomitant]
     Route: 048
  3. ATORVA PFIZER [Concomitant]
     Active Substance: ATORVASTATIN
     Route: 048
  4. VI?DE3 [Concomitant]
     Route: 048
  5. ACIDUM FOLICUM [Concomitant]
     Active Substance: FOLIC ACID
     Route: 048

REACTIONS (1)
  - Lung disorder [Recovering/Resolving]

NARRATIVE: CASE EVENT DATE: 20200830
